FAERS Safety Report 6576074-9 (Version None)
Quarter: 2010Q1

REPORT INFORMATION
  Report Type: 
  Country: None (occurrence: None)
  Receive Date: 20100209
  Receipt Date: 20100128
  Transmission Date: 20100710
  Serious: Yes (Hospitalization)
  Sender: FDA-Public Use
  Company Number: US-BRISTOL-MYERS SQUIBB COMPANY-14932842

PATIENT
  Age: 79 Year
  Sex: Female

DRUGS (15)
  1. CT-322 [Suspect]
     Indication: NON-SMALL CELL LUNG CANCER
     Route: 042
     Dates: start: 20091106, end: 20100122
  2. BEVACIZUMAB [Suspect]
     Indication: NON-SMALL CELL LUNG CANCER
     Route: 042
     Dates: start: 20091106, end: 20100122
  3. PLACEBO [Suspect]
     Indication: NON-SMALL CELL LUNG CANCER
     Route: 042
     Dates: start: 20091106, end: 20100122
  4. TAXOL [Suspect]
     Indication: NON-SMALL CELL LUNG CANCER
     Route: 042
     Dates: start: 20091106, end: 20100122
  5. CARBOPLATIN [Suspect]
     Indication: NON-SMALL CELL LUNG CANCER
     Route: 042
     Dates: start: 20091106, end: 20100122
  6. LORTAB [Suspect]
  7. SYNTHROID [Concomitant]
     Indication: HYPOTHYROIDISM
     Route: 048
     Dates: start: 20030101
  8. SIMVASTATIN [Concomitant]
     Indication: HYPERCHOLESTEROLAEMIA
     Route: 048
     Dates: start: 20040401
  9. ATENOLOL [Concomitant]
     Indication: HYPERTENSION
     Route: 048
     Dates: start: 20040401
  10. GLYBURIDE AND METFORMIN HYDROCHLORIDE [Concomitant]
     Indication: DIABETES MELLITUS
     Dosage: 1 DF= 2.5/500MG
     Route: 048
     Dates: start: 20070101
  11. MELOXICAM [Concomitant]
     Indication: PAIN
     Route: 048
     Dates: start: 20080101, end: 20090212
  12. NIACIN [Concomitant]
     Indication: HYPERCHOLESTEROLAEMIA
     Route: 048
     Dates: start: 20040401
  13. ASPIRIN [Concomitant]
     Indication: CORONARY ARTERY DISEASE
     Route: 048
     Dates: start: 20040401
  14. MULTI-VITAMIN [Concomitant]
     Dosage: 1 DF= 1 TABS
     Route: 048
     Dates: start: 20070101
  15. CENTRUM SILVER [Concomitant]
     Dosage: 1 DF= 1 TABS
     Route: 048
     Dates: start: 20090101

REACTIONS (7)
  - CONSTIPATION [None]
  - DEHYDRATION [None]
  - ILEUS [None]
  - PRESYNCOPE [None]
  - RECTAL HAEMORRHAGE [None]
  - URINARY RETENTION [None]
  - URINARY TRACT INFECTION [None]
